FAERS Safety Report 8814241 (Version 1)
Quarter: 2012Q4

REPORT INFORMATION
  Report Type: Spontaneous
  Country: US (occurrence: None)
  Receive Date: 20120926
  Receipt Date: 20120926
  Transmission Date: 20130627
  Serious: Yes (Death)
  Sender: FDA-Public Use
  Company Number: None

PATIENT
  Age: 51 Year
  Sex: Male
  Weight: 78.8 kg

DRUGS (1)
  1. PROTAMINE SULFATE [Suspect]
     Indication: CARDIAC OPERATION
     Route: 042
     Dates: start: 20120906, end: 20120906

REACTIONS (3)
  - Hypotension [None]
  - Pulmonary hypertension [None]
  - Ventricular tachycardia [None]
